FAERS Safety Report 13435401 (Version 2)
Quarter: 2017Q2

REPORT INFORMATION
  Report Type: Report from Study
  Country: DK (occurrence: DK)
  Receive Date: 20170413
  Receipt Date: 20170511
  Transmission Date: 20170830
  Serious: Yes (Death, Other)
  Sender: FDA-Public Use
  Company Number: DK-GLAXOSMITHKLINE-DK2017GSK052836

PATIENT
  Sex: Male
  Weight: 85 kg

DRUGS (6)
  1. ZANAMIVIR [Suspect]
     Active Substance: ZANAMIVIR
     Dosage: 150 MG, 1D
     Route: 042
     Dates: start: 20170126, end: 20170126
  2. ZANAMIVIR [Suspect]
     Active Substance: ZANAMIVIR
     Dosage: 600 MG, UNK
     Route: 042
     Dates: start: 20170130, end: 20170130
  3. OSELTAMIVIR [Concomitant]
     Active Substance: OSELTAMIVIR
     Indication: INFLUENZA
     Dosage: UNK
     Dates: start: 20170102, end: 20170122
  4. ZANAMIVIR [Suspect]
     Active Substance: ZANAMIVIR
     Indication: H1N1 INFLUENZA
     Dosage: 400 MG, 1D
     Route: 042
     Dates: start: 20170124, end: 20170125
  5. ZANAMIVIR [Suspect]
     Active Substance: ZANAMIVIR
     Dosage: UNK
     Route: 042
     Dates: start: 20170127, end: 20170129
  6. ZANAMIVIR [Suspect]
     Active Substance: ZANAMIVIR
     Dosage: 150 MG, UNK
     Route: 042
     Dates: start: 20170131, end: 20170207

REACTIONS (1)
  - Acute myeloid leukaemia recurrent [Fatal]
